FAERS Safety Report 5708385-0 (Version None)
Quarter: 2008Q2

REPORT INFORMATION
  Report Type: 
  Country: None (occurrence: None)
  Receive Date: 20080417
  Receipt Date: 20080404
  Transmission Date: 20081010
  Serious: Yes (Hospitalization)
  Sender: FDA-Public Use
  Company Number: JP-ELI_LILLY_AND_COMPANY-JP200803005110

PATIENT
  Sex: Female
  Weight: 72.4 kg

DRUGS (6)
  1. HUMALOG [Suspect]
     Indication: DIABETES MELLITUS
     Dosage: 0 - 4 U, DAILY (1/D)
     Route: 058
     Dates: start: 20050617, end: 20050627
  2. ALOSENN                            /00476901/ [Concomitant]
     Indication: CONSTIPATION
     Dosage: 0.5 G, UNK
     Route: 048
     Dates: start: 20050601, end: 20051011
  3. LAXOBERON [Concomitant]
     Indication: CONSTIPATION
     Dosage: UNK, UNK
     Route: 048
     Dates: start: 20050611, end: 20051011
  4. BIO THREE [Concomitant]
     Indication: CONSTIPATION
     Dosage: 3 D/F, UNK
     Route: 048
     Dates: start: 20050613, end: 20050617
  5. POSTERISAN /00521801/ [Concomitant]
     Indication: HAEMORRHOIDS
     Dosage: 2 G, UNK
     Route: 054
     Dates: start: 20050614, end: 20051019
  6. MAGNESIUM OXIDE [Concomitant]
     Indication: CONSTIPATION
     Dosage: 1 G, UNK
     Route: 048
     Dates: start: 20050615

REACTIONS (10)
  - CAESAREAN SECTION [None]
  - DIABETIC RETINOPATHY [None]
  - DRUG EXPOSURE DURING PREGNANCY [None]
  - MACULAR OEDEMA [None]
  - ORAL INTAKE REDUCED [None]
  - PREMATURE LABOUR [None]
  - RETINAL EXUDATES [None]
  - VITREOUS HAEMORRHAGE [None]
  - VOMITING IN PREGNANCY [None]
  - WEIGHT DECREASED [None]
